FAERS Safety Report 4947871-8 (Version None)
Quarter: 2006Q1

REPORT INFORMATION
  Report Type: 
  Country: None (occurrence: None)
  Receive Date: 20060317
  Receipt Date: 20060317
  Transmission Date: 20060701
  Serious: Yes (Life-Threatening, Hospitalization)
  Sender: FDA-Public Use
  Company Number: None

PATIENT
  Age: 48 Year
  Sex: Female
  Weight: 74.8435 kg

DRUGS (9)
  1. HYDROCODONE BITARTRATE AND ACETAMINOPHEN [Suspect]
     Indication: PROCEDURAL PAIN
     Dosage: 1-2 TABLETS   EVERY 4 HOURS PRN   PO
     Route: 048
     Dates: start: 20050202, end: 20050204
  2. MORPHINE [Suspect]
     Indication: PROCEDURAL PAIN
     Dosage: 1.5MG  EVERY 10 MIN. PRN  IV
     Route: 042
     Dates: start: 20050203, end: 20050204
  3. DOCUSATE SODIUM [Concomitant]
  4. GABAPENTIN [Concomitant]
  5. CEFAZOLIN [Concomitant]
  6. KETOROLAC [Concomitant]
  7. ACETAMINOPHEN [Concomitant]
  8. METOCLOPRAMIDE [Concomitant]
  9. ZOLPIDEM [Concomitant]

REACTIONS (6)
  - DYSPHAGIA [None]
  - DYSPNOEA [None]
  - HYPERSENSITIVITY [None]
  - OXYGEN SATURATION DECREASED [None]
  - POST PROCEDURAL COMPLICATION [None]
  - RASH [None]
